FAERS Safety Report 15459286 (Version 1)
Quarter: 2018Q4

REPORT INFORMATION
  Report Type: Spontaneous
  Country: US (occurrence: US)
  Receive Date: 20181003
  Receipt Date: 20181003
  Transmission Date: 20190204
  Serious: Yes (Other)
  Sender: FDA-Public Use
  Company Number: PHHY2018US110277

PATIENT
  Age: 42 Year
  Sex: Female

DRUGS (1)
  1. METHOTREXATE. [Suspect]
     Active Substance: METHOTREXATE
     Indication: DERMATOMYOSITIS
     Dosage: 20 MG, UNK
     Route: 065

REACTIONS (6)
  - Pulmonary fibrosis [Unknown]
  - Product use in unapproved indication [Unknown]
  - Dermatomyositis [Unknown]
  - Arthritis [Unknown]
  - Condition aggravated [Unknown]
  - Fatigue [Unknown]
